FAERS Safety Report 19804289 (Version 1)
Quarter: 2021Q3

REPORT INFORMATION
  Report Type: Spontaneous
  Country: US (occurrence: US)
  Receive Date: 20210908
  Receipt Date: 20210908
  Transmission Date: 20211014
  Serious: No
  Sender: FDA-Public Use
  Company Number: US-FARMAPROD-202104-0651

PATIENT
  Age: 45 Year
  Sex: Female

DRUGS (22)
  1. ESTRADIOL. [Concomitant]
     Active Substance: ESTRADIOL
  2. REFRESH CONTACTS [Concomitant]
     Active Substance: CARBOXYMETHYLCELLULOSE SODIUM
  3. OXERVATE [Suspect]
     Active Substance: CENEGERMIN-BKBJ
     Indication: NEUROTROPHIC KERATOPATHY
     Route: 047
     Dates: start: 20210331
  4. OXERVATE [Suspect]
     Active Substance: CENEGERMIN-BKBJ
     Indication: HYPOAESTHESIA EYE
  5. DOXEPIN HCL [Concomitant]
     Active Substance: DOXEPIN HYDROCHLORIDE
  6. PREDNISOLONE/NEPAFENAC [Concomitant]
  7. TOBRAMYCIN. [Concomitant]
     Active Substance: TOBRAMYCIN
  8. VALACYCLOVIR [Concomitant]
     Active Substance: VALACYCLOVIR HYDROCHLORIDE
  9. MIRALAX [Concomitant]
     Active Substance: POLYETHYLENE GLYCOL 3350
  10. TEARS AGAIN HYDRATE [Concomitant]
     Active Substance: DIETARY SUPPLEMENT
  11. OXERVATE [Suspect]
     Active Substance: CENEGERMIN-BKBJ
     Indication: ULCERATIVE KERATITIS
  12. XIIDRA [Concomitant]
     Active Substance: LIFITEGRAST
     Dosage: DROPERETTE
  13. TYLENOL [Concomitant]
     Active Substance: ACETAMINOPHEN
  14. ONDANSETRON HCL [Concomitant]
     Active Substance: ONDANSETRON HYDROCHLORIDE
  15. SINGULAIR [Concomitant]
     Active Substance: MONTELUKAST SODIUM
  16. PROMETHAZINE/DEXTROMETHORPHAN [Concomitant]
     Active Substance: DEXTROMETHORPHAN\PROMETHAZINE
     Dosage: 6.25?15/5
  17. FAMOTIDINE. [Concomitant]
     Active Substance: FAMOTIDINE
  18. MOTRIN IB [Concomitant]
     Active Substance: IBUPROFEN
  19. VITAMIN B12 [Concomitant]
     Active Substance: CYANOCOBALAMIN
  20. FERROUS SULFATE. [Concomitant]
     Active Substance: FERROUS SULFATE
  21. DOXYCYCLINE HYCLATE. [Concomitant]
     Active Substance: DOXYCYCLINE HYCLATE
  22. PANTOPRAZOLE SODIUM. [Concomitant]
     Active Substance: PANTOPRAZOLE SODIUM
     Dosage: DELAYED RELEASE TABLET

REACTIONS (1)
  - Eye pain [Recovered/Resolved]

NARRATIVE: CASE EVENT DATE: 202104
